FAERS Safety Report 23341300 (Version 1)
Quarter: 2023Q4

REPORT INFORMATION
  Report Type: Spontaneous
  Country: CN (occurrence: CN)
  Receive Date: 20231227
  Receipt Date: 20231227
  Transmission Date: 20240110
  Serious: Yes (Other)
  Sender: FDA-Public Use
  Company Number: CN-002147023-NVSC2023CN272908

PATIENT
  Age: 22 Year
  Sex: Male

DRUGS (1)
  1. TASIGNA [Suspect]
     Active Substance: NILOTINIB
     Indication: Product used for unknown indication
     Dosage: 600 MG
     Route: 048
     Dates: start: 20230427

REACTIONS (1)
  - Deafness bilateral [Unknown]

NARRATIVE: CASE EVENT DATE: 20230101
